FAERS Safety Report 8490498-4 (Version None)
Quarter: 2012Q3

REPORT INFORMATION
  Report Type: 
  Country: None (occurrence: None)
  Receive Date: 20120705
  Receipt Date: 20120623
  Transmission Date: 20120928
  Serious: Yes (Other)
  Sender: FDA-Public Use
  Company Number: GB-ROCHE-1082479

PATIENT
  Age: 54 Year

DRUGS (1)
  1. RANIBIZUMAB [Suspect]
     Indication: CHOROIDAL NEOVASCULARISATION
     Route: 050

REACTIONS (4)
  - CONJUNCTIVAL HAEMORRHAGE [None]
  - VISUAL ACUITY REDUCED [None]
  - CHOROIDAL NEOVASCULARISATION [None]
  - RETINAL DEPIGMENTATION [None]
